FAERS Safety Report 9285755 (Version 2)
Quarter: 2013Q3

REPORT INFORMATION
  Report Type: Spontaneous
  Country: US (occurrence: US)
  Receive Date: 20130513
  Receipt Date: 20130723
  Transmission Date: 20140515
  Serious: Yes (Hospitalization, Other)
  Sender: FDA-Public Use
  Company Number: US-PFIZER INC-2013143199

PATIENT
  Age: 54 Year
  Sex: Male
  Weight: 83.9 kg

DRUGS (3)
  1. REVATIO [Suspect]
     Indication: DYSPNOEA
     Dosage: 20 MG, 1X/DAY
     Route: 048
     Dates: start: 20110721
  2. TRAZODONE [Concomitant]
     Dosage: 150 MG, UNK
  3. OXYGEN [Concomitant]
     Indication: DYSPNOEA
     Dosage: UNK

REACTIONS (6)
  - Pneumonia [Recovered/Resolved]
  - Pulmonary thrombosis [Unknown]
  - Pulmonary embolism [Unknown]
  - Pulmonary hypertension [Unknown]
  - Malaise [Unknown]
  - Off label use [Unknown]
